FAERS Safety Report 25940186 (Version 1)
Quarter: 2025Q4

REPORT INFORMATION
  Report Type: Spontaneous
  Country: US (occurrence: None)
  Receive Date: 20251018
  Receipt Date: 20251018
  Transmission Date: 20260118
  Serious: No
  Sender: FDA-CTU
  Company Number: None

PATIENT
  Age: 56 Year
  Sex: Male
  Weight: 78.75 kg

DRUGS (10)
  1. DUTASTERIDE [Suspect]
     Active Substance: DUTASTERIDE
     Indication: Alopecia
     Dosage: OTHER QUANTITY : 1 TABLET(S);?FREQUENCY : DAILY;?
     Route: 048
     Dates: start: 20240801, end: 20250819
  2. ALPRAZOLAM [Concomitant]
     Active Substance: ALPRAZOLAM
  3. DAYVIGO [Concomitant]
     Active Substance: LEMBOREXANT
  4. LAMOTRIGINE [Concomitant]
     Active Substance: LAMOTRIGINE
  5. PANTOPRAZOLE [Concomitant]
     Active Substance: PANTOPRAZOLE
  6. HYDROCHLOROTHIAZIDE\OLMESARTAN MEDOXOMIL [Concomitant]
     Active Substance: HYDROCHLOROTHIAZIDE\OLMESARTAN MEDOXOMIL
  7. METOPROLOL [Concomitant]
     Active Substance: METOPROLOL
  8. WEGOVY [Concomitant]
     Active Substance: SEMAGLUTIDE
  9. VITAMINS [Concomitant]
     Active Substance: VITAMINS
  10. DIETARY SUPPLEMENT\HERBALS\MILK THISTLE [Concomitant]
     Active Substance: MILK THISTLE

REACTIONS (1)
  - Testicular pain [None]

NARRATIVE: CASE EVENT DATE: 20250905
